FAERS Safety Report 4573803-0 (Version None)
Quarter: 2005Q1

REPORT INFORMATION
  Report Type: 
  Country: None (occurrence: None)
  Receive Date: 20050203
  Receipt Date: 20050131
  Transmission Date: 20050727
  Serious: Yes (Death, Hospitalization, Other)
  Sender: FDA-Public Use
  Company Number: USA-2003-0009855

PATIENT
  Age: 34 Year
  Sex: Male
  Weight: 68 kg

DRUGS (3)
  1. OXYCONTIN [Suspect]
  2. MIDAZOLAM HCL [Suspect]
  3. ALLEGRA [Concomitant]

REACTIONS (13)
  - ABSCESS [None]
  - ACCIDENTAL DEATH [None]
  - ACCIDENTAL OVERDOSE [None]
  - ALCOHOL USE [None]
  - BRAIN DEATH [None]
  - BRONCHOPNEUMONIA [None]
  - COMA [None]
  - DRUG ABUSER [None]
  - FEELING COLD [None]
  - HEPATIC CIRRHOSIS [None]
  - HYPOXIC ENCEPHALOPATHY [None]
  - MULTIPLE DRUG OVERDOSE [None]
  - PLEURISY [None]
